FAERS Safety Report 5848693-6 (Version None)
Quarter: 2008Q3

REPORT INFORMATION
  Report Type: 
  Country: None (occurrence: None)
  Receive Date: 20080814
  Receipt Date: 20080731
  Transmission Date: 20090109
  Serious: Yes (Death, Hospitalization)
  Sender: FDA-Public Use
  Company Number: 2008EN000110

PATIENT
  Age: 41 Year
  Sex: Male

DRUGS (3)
  1. ONCASPAR [Suspect]
     Indication: ACUTE LYMPHOCYTIC LEUKAEMIA
  2. GLEEVEC [Concomitant]
  3. STEROIDS [Concomitant]

REACTIONS (2)
  - MULTI-ORGAN FAILURE [None]
  - PANCREATITIS [None]
